FAERS Safety Report 6285645-9 (Version None)
Quarter: 2009Q3

REPORT INFORMATION
  Report Type: 
  Country: None (occurrence: None)
  Receive Date: 20090724
  Receipt Date: 20090709
  Transmission Date: 20100115
  Serious: Yes (Other)
  Sender: FDA-Public Use
  Company Number: 2009SP001804

PATIENT
  Age: 51 Year
  Sex: Male
  Weight: 99.8 kg

DRUGS (11)
  1. ALVESCO [Suspect]
     Dosage: 160 UG, INHALATION
     Route: 055
  2. NASONEX [Concomitant]
  3. AZELASTINE HCL [Concomitant]
  4. THEOPHYLLINE [Concomitant]
  5. SYMBICORT [Concomitant]
  6. ACCOLATE [Concomitant]
  7. MAXAIR [Concomitant]
  8. ATROVENT [Concomitant]
  9. ALBUTEROL [Concomitant]
  10. XOLAIR [Concomitant]
  11. PREV MEDS [Concomitant]

REACTIONS (1)
  - MYOCARDIAL INFARCTION [None]
